FAERS Safety Report 9544055 (Version 4)
Quarter: 2013Q4

REPORT INFORMATION
  Report Type: Spontaneous
  Country: JP (occurrence: JP)
  Receive Date: 20130923
  Receipt Date: 20131111
  Transmission Date: 20140711
  Serious: Yes (Life-Threatening, Hospitalization, Other)
  Sender: FDA-Public Use
  Company Number: JP-B.I. PHARMACEUTICALS,INC./RIDGEFIELD-2013-BI-29228NB

PATIENT
  Age: 77 Year
  Sex: Male
  Weight: 75 kg

DRUGS (4)
  1. PRAZAXA [Suspect]
     Indication: ATRIAL FIBRILLATION
     Dosage: 220 MG
     Route: 048
     Dates: start: 20130312, end: 20130406
  2. ASPIRIN [Suspect]
     Route: 065
  3. VASOLAN / VERAPAMIL HYDROCHLORIDE [Concomitant]
     Indication: HEART RATE ABNORMAL
     Dosage: 160 MG
     Route: 048
     Dates: start: 20130312
  4. LASIX / FUROSEMIDE [Concomitant]
     Indication: CARDIAC FAILURE
     Dosage: 20 MG
     Route: 048
     Dates: start: 20130312

REACTIONS (4)
  - Cardiac tamponade [Not Recovered/Not Resolved]
  - Pericardial haemorrhage [Not Recovered/Not Resolved]
  - Dyspnoea [Recovered/Resolved]
  - Congenital coronary artery malformation [Unknown]
